FAERS Safety Report 6208834-8 (Version None)
Quarter: 2009Q2

REPORT INFORMATION
  Report Type: 
  Country: None (occurrence: None)
  Receive Date: 20090529
  Receipt Date: 20090515
  Transmission Date: 20091009
  Serious: Yes (Death, Hospitalization)
  Sender: FDA-Public Use
  Company Number: A0782966A

PATIENT
  Age: 58 Year
  Sex: Female
  Weight: 172.7 kg

DRUGS (7)
  1. AVANDIA [Suspect]
     Indication: DIABETES MELLITUS
     Route: 048
     Dates: start: 20041001, end: 20070701
  2. AVANDARYL [Suspect]
     Indication: DIABETES MELLITUS
     Route: 048
     Dates: start: 20070501, end: 20070801
  3. WARFARIN SODIUM [Concomitant]
  4. FUROSEMIDE [Concomitant]
  5. GLYBURIDE [Concomitant]
  6. K DUR [Concomitant]
  7. ACCUPRIL [Concomitant]

REACTIONS (3)
  - ARTERIOSCLEROSIS [None]
  - ATRIAL FIBRILLATION [None]
  - CARDIAC FAILURE CONGESTIVE [None]
